FAERS Safety Report 5781699-4 (Version None)
Quarter: 2008Q2

REPORT INFORMATION
  Report Type: 
  Country: None (occurrence: None)
  Receive Date: 20080623
  Receipt Date: 20080609
  Transmission Date: 20081010
  Serious: Yes (Hospitalization, Other)
  Sender: FDA-Public Use
  Company Number: US-BAYER-200812414BCC

PATIENT
  Age: 52 Year
  Sex: Male
  Weight: 95 kg

DRUGS (5)
  1. ASPIRIN [Suspect]
     Indication: MYOCARDIAL INFARCTION
     Dosage: TOTAL DAILY DOSE: 81 MG  UNIT DOSE: 81 MG
     Route: 048
     Dates: start: 20070401, end: 20080420
  2. PLAVIX [Suspect]
     Indication: MYOCARDIAL INFARCTION
     Dosage: TOTAL DAILY DOSE: 75 MG
     Route: 048
     Dates: start: 20070401, end: 20080420
  3. SIMVASTATIN [Concomitant]
  4. NICOTINIC ACID [Concomitant]
  5. METOPROLOL TARTRATE [Concomitant]

REACTIONS (7)
  - ANAEMIA [None]
  - ASTHENIA [None]
  - DIZZINESS [None]
  - DUODENAL ULCER [None]
  - HAEMATEMESIS [None]
  - MALLORY-WEISS SYNDROME [None]
  - SYNCOPE [None]
